FAERS Safety Report 6096936-9 (Version None)
Quarter: 2009Q1

REPORT INFORMATION
  Report Type: 
  Country: None (occurrence: None)
  Receive Date: 20090227
  Receipt Date: 20090223
  Transmission Date: 20090719
  Serious: Yes (Hospitalization)
  Sender: FDA-Public Use
  Company Number: US-JNJFOC-20090205828

PATIENT
  Sex: Female
  Weight: 81.65 kg

DRUGS (5)
  1. FENTANYL TRANSDERMAL SYSTEM [Suspect]
     Indication: SCOLIOSIS
     Route: 062
  2. HYDROCHLOROTHIAZIDE [Concomitant]
     Indication: HYPERTENSION
     Dosage: DAILY
     Route: 048
  3. PAXIL [Concomitant]
     Indication: DEPRESSION
     Route: 048
  4. LISINOPRIL [Concomitant]
     Indication: HYPERTENSION
     Dosage: 10 MG DAILY
     Route: 048
  5. PERCOCET [Concomitant]
     Indication: BREAKTHROUGH PAIN
     Dosage: 5-325 MG
     Route: 048

REACTIONS (6)
  - BACK PAIN [None]
  - BLOOD POTASSIUM DECREASED [None]
  - BLOOD URINE PRESENT [None]
  - CHEST PAIN [None]
  - GROIN PAIN [None]
  - PAIN IN EXTREMITY [None]
